FAERS Safety Report 9771990 (Version 1)
Quarter: 2013Q4

REPORT INFORMATION
  Report Type: Spontaneous
  Country: US (occurrence: US)
  Receive Date: 20131219
  Receipt Date: 20131219
  Transmission Date: 20140711
  Serious: Yes (Disabling)
  Sender: FDA-Public Use
  Company Number: US-ROCHE-1319943

PATIENT
  Sex: Male

DRUGS (13)
  1. XELODA [Suspect]
     Indication: PRODUCT USED FOR UNKNOWN INDICATION
     Dosage: 1 WK ON 1 WK OFF
     Route: 048
     Dates: start: 20131114, end: 20131208
  2. AMLODIPINE [Concomitant]
     Route: 065
  3. CYCLOBENZAPRINE [Concomitant]
     Route: 065
  4. CARISOPRODOL [Concomitant]
     Route: 065
  5. VICODIN [Concomitant]
     Route: 065
  6. TRIAMTERENE/HCTZ [Concomitant]
     Dosage: 37.5/25
     Route: 065
  7. OXYCODONE [Concomitant]
     Route: 065
  8. ENALAPRIL [Concomitant]
     Route: 065
  9. SIMVASTATIN [Concomitant]
     Route: 065
  10. TAMSULOSIN [Concomitant]
  11. METOPROLOL SUCCINATE [Concomitant]
  12. AVODART [Concomitant]
     Route: 065
  13. LEVOTHYROXINE [Concomitant]
     Route: 065

REACTIONS (3)
  - Muscle spasms [Unknown]
  - Fall [Unknown]
  - Condition aggravated [Unknown]
